FAERS Safety Report 4423245-3 (Version None)
Quarter: 2004Q3

REPORT INFORMATION
  Report Type: 
  Country: None (occurrence: None)
  Receive Date: 20040810
  Receipt Date: 20040810
  Transmission Date: 20050211
  Serious: Yes (Disabling)
  Sender: FDA-Public Use
  Company Number: None

PATIENT
  Sex: Male
  Weight: 84.8226 kg

DRUGS (1)
  1. AVELOX [Suspect]
     Indication: ACUTE SINUSITIS
     Dosage: ONE DAILY ORAL
     Route: 048
     Dates: start: 20040528, end: 20040528

REACTIONS (6)
  - ABASIA [None]
  - ARTHRALGIA [None]
  - BONE PAIN [None]
  - LIGAMENT DISORDER [None]
  - POST PROCEDURAL COMPLICATION [None]
  - TENDON DISORDER [None]
